FAERS Safety Report 8365236-6 (Version None)
Quarter: 2012Q2

REPORT INFORMATION
  Report Type: 
  Country: None (occurrence: None)
  Receive Date: 20120516
  Receipt Date: 20120425
  Transmission Date: 20120825
  Serious: Yes (Death, Hospitalization, Other)
  Sender: FDA-Public Use
  Company Number: US-BAXTER-2012BAX000532

PATIENT
  Sex: Male

DRUGS (1)
  1. DIANEAL [Suspect]
     Indication: PERITONEAL DIALYSIS
     Route: 033
     Dates: start: 20120126, end: 20120220

REACTIONS (10)
  - PERITONITIS [None]
  - SEPSIS [None]
  - POOR PERIPHERAL CIRCULATION [None]
  - BLISTER [None]
  - KLEBSIELLA INFECTION [None]
  - PERIPHERAL COLDNESS [None]
  - WOUND [None]
  - URINE OUTPUT DECREASED [None]
  - ESCHERICHIA INFECTION [None]
  - SERRATIA INFECTION [None]
